FAERS Safety Report 7907560-4 (Version None)
Quarter: 2011Q4

REPORT INFORMATION
  Report Type: 
  Country: None (occurrence: None)
  Receive Date: 20111109
  Receipt Date: 20111109
  Transmission Date: 20120403
  Serious: Yes (Other)
  Sender: FDA-Public Use
  Company Number: None

PATIENT
  Sex: Female
  Weight: 49.8957 kg

DRUGS (1)
  1. WELLBUTRIN XL [Suspect]
     Indication: DEPRESSION
     Dosage: 150 MG; 1 DAILY; ORAL A NUMBER OF YEARS PRIOR TO PARKINSON DIAGNOSIS
     Route: 048

REACTIONS (1)
  - PARKINSON'S DISEASE [None]
